FAERS Safety Report 4474149-1 (Version None)
Quarter: 2004Q4

REPORT INFORMATION
  Report Type: 
  Country: None (occurrence: None)
  Receive Date: 20041014
  Receipt Date: 20041005
  Transmission Date: 20050328
  Serious: Yes (Other)
  Sender: FDA-Public Use
  Company Number: 200412275DE

PATIENT
  Age: 54 Year
  Sex: Female

DRUGS (3)
  1. DOCETAXEL [Suspect]
     Indication: BREAST CANCER
  2. EPIRUBICIN [Concomitant]
     Indication: BREAST CANCER
     Dates: start: 20040501
  3. CYCLOPHOSPHAMIDE [Concomitant]
     Indication: BREAST CANCER
     Dates: start: 20040501

REACTIONS (3)
  - DIASTOLIC DYSFUNCTION [None]
  - DYSPNOEA [None]
  - PALPITATIONS [None]
